FAERS Safety Report 25221009 (Version 1)
Quarter: 2025Q2

REPORT INFORMATION
  Report Type: Spontaneous
  Country: US (occurrence: None)
  Receive Date: 20250419
  Receipt Date: 20250419
  Transmission Date: 20250716
  Serious: Yes (Hospitalization, Disabling)
  Sender: FDA-CTU
  Company Number: None

PATIENT
  Age: 27 Year
  Sex: Female
  Weight: 63.45 kg

DRUGS (6)
  1. SEMAGLUTIDE [Suspect]
     Active Substance: SEMAGLUTIDE
     Indication: Weight decreased
     Dates: start: 20240712, end: 20250405
  2. ZOLOFT [Concomitant]
     Active Substance: SERTRALINE HYDROCHLORIDE
  3. PROPRANOLOL [Concomitant]
     Active Substance: PROPRANOLOL HYDROCHLORIDE
  4. KLONOPIN [Concomitant]
     Active Substance: CLONAZEPAM
  5. PANTOPRAZOLE [Concomitant]
     Active Substance: PANTOPRAZOLE
  6. VITAMINS [Concomitant]
     Active Substance: VITAMINS

REACTIONS (10)
  - Vomiting [None]
  - Epistaxis [None]
  - Panic attack [None]
  - Suicidal ideation [None]
  - Blood sodium decreased [None]
  - Blood potassium decreased [None]
  - Blood urea decreased [None]
  - Blood creatinine decreased [None]
  - Electrocardiogram QT prolonged [None]
  - Cardiac arrest [None]

NARRATIVE: CASE EVENT DATE: 20250407
